FAERS Safety Report 4630755-2 (Version None)
Quarter: 2005Q2

REPORT INFORMATION
  Report Type: 
  Country: None (occurrence: None)
  Receive Date: 20050408
  Receipt Date: 20050330
  Transmission Date: 20051028
  Serious: Yes (Hospitalization)
  Sender: FDA-Public Use
  Company Number: US-ROCHE-400153

PATIENT

DRUGS (7)
  1. KLONOPIN [Suspect]
     Indication: DRUG USE FOR UNKNOWN INDICATION
     Route: 065
  2. WELLBUTRIN SR [Interacting]
     Indication: DRUG USE FOR UNKNOWN INDICATION
     Route: 048
  3. LITHIUM CARBONATE [Interacting]
     Indication: DRUG USE FOR UNKNOWN INDICATION
     Route: 065
  4. COGENTIN [Interacting]
     Indication: DRUG USE FOR UNKNOWN INDICATION
     Route: 065
  5. TRAZODONE HCL [Interacting]
     Indication: DRUG USE FOR UNKNOWN INDICATION
     Route: 065
  6. PROLIXIN [Interacting]
     Indication: DRUG USE FOR UNKNOWN INDICATION
     Route: 065
  7. SEROQUEL [Interacting]
     Indication: DRUG USE FOR UNKNOWN INDICATION
     Route: 065

REACTIONS (1)
  - DRUG INTERACTION [None]
